FAERS Safety Report 21789817 (Version 1)
Quarter: 2022Q4

REPORT INFORMATION
  Report Type: Spontaneous
  Country: US (occurrence: None)
  Receive Date: 20221228
  Receipt Date: 20221228
  Transmission Date: 20230113
  Serious: Yes (Other)
  Sender: FDA-Public Use
  Company Number: None

PATIENT
  Age: 79 Year
  Sex: Female
  Weight: 53.55 kg

DRUGS (7)
  1. MYRBETRIQ [Suspect]
     Active Substance: MIRABEGRON
     Indication: Hypertonic bladder
     Dates: start: 20221202, end: 20221209
  2. ANASTROZOLE [Concomitant]
     Active Substance: ANASTROZOLE
  3. Calcium with Vitamin D [Concomitant]
  4. IBUPROFEN [Concomitant]
  5. Multivitamin [Concomitant]
  6. FLUTICASONE PROPIONATE [Concomitant]
     Active Substance: FLUTICASONE PROPIONATE
  7. ROSUVASTATIN [Concomitant]
     Active Substance: ROSUVASTATIN

REACTIONS (3)
  - Chills [None]
  - Rash pruritic [None]
  - Night sweats [None]

NARRATIVE: CASE EVENT DATE: 20221207
